FAERS Safety Report 24304066 (Version 1)
Quarter: 2024Q3

REPORT INFORMATION
  Report Type: Spontaneous
  Country: US (occurrence: None)
  Receive Date: 20240909
  Receipt Date: 20240909
  Transmission Date: 20241017
  Serious: No
  Sender: Public
  Company Number: None

PATIENT
  Sex: Female
  Weight: 69.3 kg

DRUGS (1)
  1. NAPROXEN [Suspect]
     Active Substance: NAPROXEN
     Indication: Cancer pain
     Dosage: FREQUENCY : TWICE A DAY;?
     Route: 048
     Dates: start: 20240905, end: 20240909

REACTIONS (1)
  - Blood creatinine increased [None]
